FAERS Safety Report 11628054 (Version 1)
Quarter: 2015Q4

REPORT INFORMATION
  Report Type: Spontaneous
  Country: US (occurrence: US)
  Receive Date: 20151014
  Receipt Date: 20151014
  Transmission Date: 20160304
  Serious: No
  Sender: FDA-Public Use
  Company Number: US-TEVA-599870ACC

PATIENT
  Age: 19 Year
  Sex: Female
  Weight: 74.91 kg

DRUGS (1)
  1. PARAGARD T 380A [Suspect]
     Active Substance: COPPER
     Indication: CONTRACEPTION
     Dates: start: 20150618

REACTIONS (3)
  - Vaginal discharge [Not Recovered/Not Resolved]
  - Device expulsion [Not Recovered/Not Resolved]
  - Micturition disorder [Not Recovered/Not Resolved]

NARRATIVE: CASE EVENT DATE: 20150618
